FAERS Safety Report 18925836 (Version 1)
Quarter: 2021Q1

REPORT INFORMATION
  Report Type: Spontaneous
  Country: US (occurrence: US)
  Receive Date: 20210222
  Receipt Date: 20210222
  Transmission Date: 20210420
  Serious: No
  Sender: FDA-Public Use
  Company Number: US-B.I. PHARMACEUTICALS,INC./RIDGEFIELD-2021-BI-085062

PATIENT
  Sex: Female

DRUGS (2)
  1. JARDIANCE [Suspect]
     Active Substance: EMPAGLIFLOZIN
     Indication: CARDIAC DISORDER
     Dosage: 10MG
     Dates: start: 20210126
  2. JARDIANCE [Suspect]
     Active Substance: EMPAGLIFLOZIN
     Indication: VENTRICLE RUPTURE

REACTIONS (1)
  - Off label use [Unknown]
